FAERS Safety Report 4342987-1 (Version None)
Quarter: 2004Q2

REPORT INFORMATION
  Report Type: 
  Country: None (occurrence: None)
  Receive Date: 20040421
  Receipt Date: 19991119
  Transmission Date: 20050107
  Serious: Yes (Congenital Anomaly)
  Sender: FDA-Public Use
  Company Number: GB-MERCK-99115253B1

PATIENT
  Age: 0 Day
  Sex: Female
  Weight: 1 kg

DRUGS (3)
  1. ASPIRIN [Concomitant]
  2. DILTIAZEM D-CIS FORM HYDROCHLORIDE [Concomitant]
  3. ZOCOR [Suspect]
     Indication: HYPERCHOLESTEROLAEMIA
     Dates: start: 19981213, end: 19991120

REACTIONS (6)
  - CLEFT LIP [None]
  - FOETAL GROWTH RETARDATION [None]
  - MATERNAL DRUGS AFFECTING FOETUS [None]
  - PREGNANCY [None]
  - PREMATURE BABY [None]
  - SMALL FOR DATES BABY [None]
